FAERS Safety Report 10036311 (Version 1)
Quarter: 2014Q1

REPORT INFORMATION
  Report Type: Spontaneous
  Country: US (occurrence: None)
  Receive Date: 20140306
  Receipt Date: 20140306
  Transmission Date: 20141002
  Serious: Yes (Other)
  Sender: FDA-Public Use
  Company Number: 163-21880-11083404

PATIENT
  Age: 61 Year
  Sex: Male
  Weight: 61.24 kg

DRUGS (9)
  1. REVLIMID [Suspect]
     Indication: PLASMA CELL MYELOMA
     Dosage: 25 MG, 21 IN 21 D, PO
     Route: 048
     Dates: start: 20110712
  2. BARACLUDE (ENTECAVIR) [Concomitant]
  3. ZOCOR (SIMVASTATIN) [Concomitant]
  4. LOPRESSOR (METOPROLOL TARTRATE) [Concomitant]
  5. NORVASC (AMLODIPINE BESILATE) [Concomitant]
  6. ASA (ACETYLSALICYLIC ACID) [Concomitant]
  7. DEXAMETHASONE (DEXAMETHASONE) [Concomitant]
  8. ZOLEDRONIC ACID (ZOLEDRONIC ACID) [Concomitant]
  9. VELCADE (BORTEZOMIB) [Concomitant]

REACTIONS (11)
  - Bone marrow failure [None]
  - Thrombocytopenia [None]
  - Neuropathy peripheral [None]
  - White blood cell count decreased [None]
  - Platelet count decreased [None]
  - Balance disorder [None]
  - Dizziness [None]
  - Plasma cell myeloma [None]
  - Asthenia [None]
  - Hypoaesthesia [None]
  - Fatigue [None]
